FAERS Safety Report 5582008-6 (Version None)
Quarter: 2007Q4

REPORT INFORMATION
  Report Type: 
  Country: None (occurrence: None)
  Receive Date: 20071130
  Receipt Date: 20070220
  Transmission Date: 20080405
  Serious: Yes (Other)
  Sender: FDA-Public Use
  Company Number: WAES 0702USA03774

PATIENT
  Sex: Female

DRUGS (4)
  1. FOSAMAX [Suspect]
     Indication: DRUG USE FOR UNKNOWN INDICATION
     Dosage: 70 MG/WKY/PO
     Route: 048
     Dates: end: 20070220
  2. LIPITOR [Concomitant]
  3. TRICOR [Concomitant]
  4. ZOCOR [Concomitant]

REACTIONS (1)
  - OSTEONECROSIS [None]
